FAERS Safety Report 4562536-2 (Version None)
Quarter: 2005Q1

REPORT INFORMATION
  Report Type: 
  Country: None (occurrence: None)
  Receive Date: 20050127
  Receipt Date: 20050120
  Transmission Date: 20050727
  Serious: Yes (Other)
  Sender: FDA-Public Use
  Company Number: US-JNJFOC-20041105442

PATIENT
  Sex: Male
  Weight: 25.7 kg

DRUGS (1)
  1. CONCERTA [Suspect]
     Route: 049
     Dates: start: 20041116, end: 20041116

REACTIONS (15)
  - ABNORMAL BEHAVIOUR [None]
  - AGGRESSION [None]
  - BITE [None]
  - BRUXISM [None]
  - DYSKINESIA [None]
  - FORMICATION [None]
  - HALLUCINATIONS, MIXED [None]
  - HEART RATE INCREASED [None]
  - INTENTIONAL SELF-INJURY [None]
  - MUSCLE TWITCHING [None]
  - MYDRIASIS [None]
  - PARANOIA [None]
  - PERSONALITY CHANGE [None]
  - SCREAMING [None]
  - TREMOR [None]
